FAERS Safety Report 4555151-8 (Version None)
Quarter: 2005Q1

REPORT INFORMATION
  Report Type: 
  Country: None (occurrence: None)
  Receive Date: 20041228
  Receipt Date: 20040623
  Transmission Date: 20050727
  Serious: Yes (Other)
  Sender: FDA-Public Use
  Company Number: PHEH2004US06890

PATIENT
  Age: 70 Year
  Sex: Female
  Weight: 52.2 kg

DRUGS (4)
  1. AREDIA [Suspect]
     Indication: METASTASES TO BONE
     Dosage: 90 MG Q4WKS, INFUSION
  2. FASLODEX [Concomitant]
  3. EVISTA [Concomitant]
  4. ALDACTONE [Concomitant]

REACTIONS (5)
  - IMPAIRED HEALING [None]
  - INFECTED CYST [None]
  - LESION EXCISION [None]
  - OSTEONECROSIS [None]
  - TOOTH EXTRACTION [None]
